FAERS Safety Report 16672213 (Version 4)
Quarter: 2019Q3

REPORT INFORMATION
  Report Type: Spontaneous
  Country: NL (occurrence: NL)
  Receive Date: 20190806
  Receipt Date: 20190826
  Transmission Date: 20191004
  Serious: Yes (Other)
  Sender: FDA-Public Use
  Company Number: NL-AUROBINDO-AUR-APL-2019-045849

PATIENT

DRUGS (2)
  1. CIPROFLOXACIN. [Suspect]
     Active Substance: CIPROFLOXACIN
     Indication: PROSTATITIS
     Dosage: UNK
     Route: 065
  2. XARELTO [Suspect]
     Active Substance: RIVAROXABAN
     Indication: ANTICOAGULANT THERAPY
     Dosage: 2.5 MILLIGRAM, ONCE A DAY
     Route: 048

REACTIONS (5)
  - Haematospermia [Recovered/Resolved]
  - Blood pressure systolic increased [Unknown]
  - Lung infection [Recovered/Resolved]
  - Blood urine present [Recovered/Resolved]
  - Atrial fibrillation [Unknown]
